FAERS Safety Report 7387225-0 (Version None)
Quarter: 2011Q1

REPORT INFORMATION
  Report Type: 
  Country: None (occurrence: None)
  Receive Date: 20110331
  Receipt Date: 20110323
  Transmission Date: 20110831
  Serious: Yes (Hospitalization, Disabling)
  Sender: FDA-Public Use
  Company Number: FR-ASTRAZENECA-2011SE16980

PATIENT
  Sex: Female

DRUGS (5)
  1. CORTANCYL [Concomitant]
     Indication: MUSCULOSKELETAL PAIN
     Route: 048
  2. MOPRAL [Suspect]
     Indication: GASTRIC DISORDER
     Route: 048
     Dates: start: 20091201, end: 20101126
  3. SEROPLEX [Interacting]
     Indication: DEPRESSION
     Route: 048
     Dates: end: 20101226
  4. CONTRAMAL [Concomitant]
     Indication: MUSCULOSKELETAL PAIN
     Route: 048
  5. PARACETAMOL [Concomitant]
     Indication: PAIN
     Route: 065

REACTIONS (2)
  - HYPONATRAEMIA [None]
  - DRUG INTERACTION [None]
